FAERS Safety Report 16959319 (Version 1)
Quarter: 2019Q4

REPORT INFORMATION
  Report Type: Spontaneous
  Country: US (occurrence: US)
  Receive Date: 20191025
  Receipt Date: 20191025
  Transmission Date: 20200122
  Serious: Yes (Hospitalization)
  Sender: FDA-Public Use
  Company Number: US-ASTRAZENECA-2019SF50401

PATIENT
  Age: 67 Year
  Sex: Male
  Weight: 85.7 kg

DRUGS (3)
  1. ELAQUIS [Concomitant]
     Indication: ATRIAL FIBRILLATION
  2. IMFINZI [Suspect]
     Active Substance: DURVALUMAB
     Indication: LUNG NEOPLASM MALIGNANT
     Route: 042
     Dates: start: 201812
  3. AMBIEN [Concomitant]
     Active Substance: ZOLPIDEM TARTRATE
     Indication: SLEEP DISORDER

REACTIONS (4)
  - Pneumonia [Recovered/Resolved]
  - Weight decreased [Recovering/Resolving]
  - Asthenia [Recovered/Resolved]
  - Insomnia [Unknown]

NARRATIVE: CASE EVENT DATE: 2019
